FAERS Safety Report 6638027-1 (Version None)
Quarter: 2010Q1

REPORT INFORMATION
  Report Type: 
  Country: None (occurrence: None)
  Receive Date: 20100317
  Receipt Date: 20100305
  Transmission Date: 20100710
  Serious: Yes (Hospitalization)
  Sender: FDA-Public Use
  Company Number: FR-PFIZER INC-2010029197

PATIENT
  Age: 71 Year
  Sex: Male

DRUGS (11)
  1. ZITHROMAX [Suspect]
     Dosage: UNK
     Route: 048
     Dates: start: 20091202, end: 20091203
  2. KARDEGIC [Concomitant]
  3. PRAVASTATIN [Concomitant]
  4. PLAVIX [Concomitant]
  5. SECTRAL [Concomitant]
  6. OMEPRAZOLE [Concomitant]
  7. PIASCLEDINE [Concomitant]
  8. ACECLOFENAC [Concomitant]
  9. TEMESTA [Concomitant]
  10. VAGOSTABYL [Concomitant]
  11. PIRACETAM [Concomitant]

REACTIONS (2)
  - PRURITUS [None]
  - RASH MACULO-PAPULAR [None]
